FAERS Safety Report 25973432 (Version 1)
Quarter: 2025Q4

REPORT INFORMATION
  Report Type: Report from Study
  Country: JP (occurrence: JP)
  Receive Date: 20251029
  Receipt Date: 20251029
  Transmission Date: 20260118
  Serious: Yes (Death)
  Sender: ROCHE
  Company Number: JP-ROCHE-10000421064

PATIENT

DRUGS (1)
  1. RITUXAN [Suspect]
     Active Substance: RITUXIMAB
     Indication: Haematological malignancy
     Route: 042

REACTIONS (1)
  - Progressive multifocal leukoencephalopathy [Fatal]
